FAERS Safety Report 17547130 (Version 4)
Quarter: 2020Q3

REPORT INFORMATION
  Report Type: Report from Study
  Country: US (occurrence: US)
  Receive Date: 20200316
  Receipt Date: 20200723
  Transmission Date: 20201102
  Serious: Yes (Death, Hospitalization)
  Sender: FDA-Public Use
  Company Number: US-ACTELION-A-NJ2020-201006

PATIENT
  Sex: Female

DRUGS (3)
  1. SILDENAFIL. [Concomitant]
     Active Substance: SILDENAFIL
  2. OPSUMIT [Suspect]
     Active Substance: MACITENTAN
     Indication: PULMONARY HYPERTENSION
     Dosage: 10 MG, QD
     Route: 048
  3. DILTIAZEM. [Concomitant]
     Active Substance: DILTIAZEM

REACTIONS (9)
  - Blood potassium increased [Unknown]
  - Hospice care [Unknown]
  - Dyspnoea [Unknown]
  - Asthenia [Unknown]
  - Exposure to communicable disease [Unknown]
  - Sepsis [Fatal]
  - Hypertension [Unknown]
  - Blood magnesium increased [Unknown]
  - Malaise [Unknown]
